FAERS Safety Report 5381732-8 (Version None)
Quarter: 2007Q3

REPORT INFORMATION
  Report Type: 
  Country: None (occurrence: None)
  Receive Date: 20070709
  Receipt Date: 20070702
  Transmission Date: 20080115
  Serious: Yes (Hospitalization)
  Sender: FDA-Public Use
  Company Number: PHRM2007FR01791

PATIENT
  Age: 58 Year
  Sex: Female

DRUGS (1)
  1. VOTALIN [Suspect]
     Indication: SCIATICA
     Dosage: 75 MG, UNK
     Route: 048
     Dates: start: 20050501, end: 20050601

REACTIONS (1)
  - UROSEPSIS [None]
